FAERS Safety Report 7397024-1 (Version None)
Quarter: 2011Q2

REPORT INFORMATION
  Report Type: 
  Country: None (occurrence: None)
  Receive Date: 20110406
  Receipt Date: 20101013
  Transmission Date: 20111010
  Serious: Yes (Hospitalization, Other)
  Sender: FDA-Public Use
  Company Number: US-BAYER-201011579NA

PATIENT
  Sex: Female
  Weight: 58.957 kg

DRUGS (3)
  1. AVELOX [Concomitant]
     Indication: SUPERINFECTION
     Dosage: UNK
     Dates: start: 20060502
  2. AVELOX [Concomitant]
     Indication: PNEUMONIA
  3. YASMIN [Suspect]
     Indication: CONTRACEPTION
     Dosage: UNK
     Route: 048
     Dates: start: 20050901, end: 20060501

REACTIONS (6)
  - PAIN [None]
  - DYSPNOEA [None]
  - HAEMOPTYSIS [None]
  - PULMONARY EMBOLISM [None]
  - BACK PAIN [None]
  - DIZZINESS [None]
